FAERS Safety Report 9725370 (Version 1)
Quarter: 2013Q4

REPORT INFORMATION
  Report Type: Spontaneous
  Country: US (occurrence: None)
  Receive Date: 20131202
  Receipt Date: 20131202
  Transmission Date: 20140711
  Serious: Yes (Disabling)
  Sender: FDA-Public Use
  Company Number: None

PATIENT
  Age: 50 Year
  Sex: Female
  Weight: 63.5 kg

DRUGS (1)
  1. ABILIFY 5 MG BRISTOL-MYERS SQUIBB [Suspect]
     Indication: MAJOR DEPRESSION
     Dosage: 1 PILL, ONCE DAILY, TAKEN BY MOUTH
     Dates: start: 20090501, end: 20131129

REACTIONS (3)
  - Muscle spasms [None]
  - Insomnia [None]
  - Drug withdrawal syndrome [None]
